FAERS Safety Report 7642420-8 (Version None)
Quarter: 2011Q3

REPORT INFORMATION
  Report Type: 
  Country: None (occurrence: None)
  Receive Date: 20110728
  Receipt Date: 20101011
  Transmission Date: 20111222
  Serious: No
  Sender: FDA-Public Use
  Company Number: US-MYLANLABS-2010S1018854

PATIENT
  Sex: Female

DRUGS (1)
  1. LEVOTHYROXINE SODIUM [Suspect]
     Indication: THYROID DISORDER

REACTIONS (9)
  - DYSPNOEA [None]
  - STRESS [None]
  - IMPATIENCE [None]
  - CONFUSIONAL STATE [None]
  - DISTURBANCE IN ATTENTION [None]
  - IRRITABILITY [None]
  - WEIGHT INCREASED [None]
  - HEART RATE DECREASED [None]
  - DRUG EFFECT DECREASED [None]
